FAERS Safety Report 6314207-X (Version None)
Quarter: 2009Q3

REPORT INFORMATION
  Report Type: 
  Country: None (occurrence: None)
  Receive Date: 20090817
  Receipt Date: 20090803
  Transmission Date: 20100115
  Serious: Yes (Hospitalization)
  Sender: FDA-Public Use
  Company Number: 8044090

PATIENT
  Age: 44 Year
  Sex: Female
  Weight: 59 kg

DRUGS (10)
  1. KEPPRA [Suspect]
     Indication: CONVULSION
     Dosage: 2000 MG /D PO
     Route: 048
     Dates: start: 20030101, end: 20090220
  2. KEPPRA [Suspect]
     Indication: CONVULSION
     Dosage: 2000 MG /D PO
     Route: 048
     Dates: start: 20090301
  3. KEPPRA [Suspect]
     Indication: CONVULSION
     Dosage: 1000 MG 2/D PO
     Route: 048
     Dates: start: 20020101
  4. LEVETIRACETAM [Suspect]
     Indication: CONVULSION
     Dosage: 1000 MG 2/D PO
     Route: 048
     Dates: start: 20090220, end: 20090301
  5. DIOVAN [Concomitant]
  6. NORVASC [Concomitant]
  7. DIVIGEL [Concomitant]
  8. METHIMAZOLE [Concomitant]
  9. CARBATROL [Concomitant]
  10. VIVELLE [Concomitant]

REACTIONS (5)
  - BASEDOW'S DISEASE [None]
  - CEREBROVASCULAR ACCIDENT [None]
  - GAIT DISTURBANCE [None]
  - HEMIPLEGIA [None]
  - VISION BLURRED [None]
